FAERS Safety Report 4840131-5 (Version None)
Quarter: 2005Q4

REPORT INFORMATION
  Report Type: 
  Country: None (occurrence: None)
  Receive Date: 20051123
  Receipt Date: 20051115
  Transmission Date: 20060501
  Serious: Yes (Death)
  Sender: FDA-Public Use
  Company Number: USA-2005-0021745

PATIENT
  Age: 42 Year
  Sex: Male
  Weight: 88.9 kg

DRUGS (4)
  1. OXYCONTIN [Suspect]
  2. ALPRAZOLAM [Suspect]
  3. CARISOPRODOL [Suspect]
  4. MEPROBAMATE [Suspect]

REACTIONS (4)
  - DRUG PRESCRIBING ERROR [None]
  - DRUG TOXICITY [None]
  - PULMONARY CONGESTION [None]
  - PULMONARY OEDEMA [None]
